FAERS Safety Report 21420298 (Version 2)
Quarter: 2022Q4

REPORT INFORMATION
  Report Type: Report from Study
  Country: None (occurrence: US)
  Receive Date: 20221007
  Receipt Date: 20221019
  Transmission Date: 20230113
  Serious: Yes (Death, Other)
  Sender: FDA-Public Use
  Company Number: US-AKCEA THERAPEUTICS, INC.-2021IS001928

PATIENT
  Age: 81 Year
  Sex: Male
  Weight: 89.091 kg

DRUGS (16)
  1. TEGSEDI [Suspect]
     Active Substance: INOTERSEN SODIUM
     Indication: Hereditary neuropathic amyloidosis
     Route: 058
     Dates: start: 20200804
  2. DEVICE [Suspect]
     Active Substance: DEVICE
  3. TEGSEDI [Suspect]
     Active Substance: INOTERSEN SODIUM
     Route: 058
     Dates: start: 20200808
  4. TEGSEDI [Suspect]
     Active Substance: INOTERSEN SODIUM
     Route: 058
     Dates: start: 20200831
  5. TEGSEDI [Suspect]
     Active Substance: INOTERSEN SODIUM
     Route: 058
  6. ENSURE [Concomitant]
     Active Substance: AMINO ACIDS\DEXTROSE\ELECTROLYTES NOS\SOYBEAN OIL\VITAMINS
     Route: 065
  7. MIRTAZAPINE [Concomitant]
     Active Substance: MIRTAZAPINE
     Route: 065
  8. METOPROLOL SUCCINATE [Concomitant]
     Active Substance: METOPROLOL SUCCINATE
     Route: 065
  9. MECLIZINE HYDROCHLORIDE [Concomitant]
     Active Substance: MECLIZINE HYDROCHLORIDE
     Route: 065
  10. BUMETANIDE [Concomitant]
     Active Substance: BUMETANIDE
     Route: 065
  11. CHOLECALCIFEROL [Concomitant]
     Active Substance: CHOLECALCIFEROL
     Route: 065
  12. FLOMAX [Concomitant]
     Active Substance: TAMSULOSIN HYDROCHLORIDE
     Route: 065
  13. VITAMINS [Concomitant]
     Active Substance: VITAMINS
     Route: 065
  14. XALATAN [Concomitant]
     Active Substance: LATANOPROST
     Route: 065
  15. VYNDAMAX [Concomitant]
     Active Substance: TAFAMIDIS
     Route: 065
  16. ELIQUIS [Concomitant]
     Active Substance: APIXABAN
     Route: 065

REACTIONS (20)
  - Septic shock [Fatal]
  - Glomerular filtration rate decreased [Unknown]
  - Urine ketone body present [Unknown]
  - Blood creatinine increased [Unknown]
  - Urine protein/creatinine ratio abnormal [Unknown]
  - Urinary occult blood positive [Unknown]
  - Red blood cell count abnormal [Unknown]
  - Vein collapse [Unknown]
  - Pain in extremity [Unknown]
  - Blood bilirubin increased [Unknown]
  - Sclerodactylia [Unknown]
  - Pain [Unknown]
  - Dyspnoea [Unknown]
  - Bacterial test positive [Unknown]
  - Paraesthesia [Unknown]
  - Protein urine present [Unknown]
  - Platelet count decreased [Unknown]
  - Decreased appetite [Unknown]
  - Urine abnormality [Unknown]
  - Urinary sediment present [Unknown]

NARRATIVE: CASE EVENT DATE: 20211129
